FAERS Safety Report 12669992 (Version 1)
Quarter: 2016Q3

REPORT INFORMATION
  Report Type: Spontaneous
  Country: US (occurrence: US)
  Receive Date: 20160821
  Receipt Date: 20160821
  Transmission Date: 20161109
  Serious: Yes (Other)
  Sender: FDA-Public Use
  Company Number: US-AMGEN-USASP2016098554

PATIENT
  Age: 81 Year
  Sex: Male
  Weight: 73.65 kg

DRUGS (8)
  1. THEOPHYLLINE [Concomitant]
     Active Substance: THEOPHYLLINE ANHYDROUS
     Indication: CHRONIC OBSTRUCTIVE PULMONARY DISEASE
  2. BROVANA [Concomitant]
     Active Substance: ARFORMOTEROL TARTRATE
  3. ARAVA [Suspect]
     Active Substance: LEFLUNOMIDE
     Dosage: 20 UNK, UNK
     Route: 065
     Dates: start: 2004, end: 201607
  4. BRIMONIDINE [Concomitant]
     Active Substance: BRIMONIDINE TARTRATE
     Route: 047
  5. CELEBREX [Concomitant]
     Active Substance: CELECOXIB
     Dosage: 200 MG, BID
  6. PROLIA [Suspect]
     Active Substance: DENOSUMAB
     Indication: OSTEOPOROSIS
     Dosage: UNK
     Route: 065
     Dates: start: 20150611
  7. BUDESONIDE. [Concomitant]
     Active Substance: BUDESONIDE
  8. ARAVA [Suspect]
     Active Substance: LEFLUNOMIDE
     Indication: RHEUMATOID ARTHRITIS
     Dosage: 20 MG/DL, UNK
     Route: 065
     Dates: start: 20151217, end: 201605

REACTIONS (4)
  - Skin irritation [Unknown]
  - Diarrhoea [Not Recovered/Not Resolved]
  - Osteopenia [Not Recovered/Not Resolved]
  - Swelling [Unknown]

NARRATIVE: CASE EVENT DATE: 2015
